FAERS Safety Report 8168921-4 (Version None)
Quarter: 2012Q1

REPORT INFORMATION
  Report Type: 
  Country: None (occurrence: None)
  Receive Date: 20120222
  Receipt Date: 20120207
  Transmission Date: 20120608
  Serious: Yes (Other)
  Sender: FDA-Public Use
  Company Number: VALP20120002

PATIENT
  Age: 36 Year
  Sex: Male

DRUGS (4)
  1. DIAZEPAM [Suspect]
     Indication: AGITATION
     Dosage: 10 MG/PRN, INTRAMUSCULAR
     Route: 030
  2. VALPROIC ACID [Suspect]
     Indication: MANIA
     Dosage: 1000 MG, DAILY, UNKNOWN
  3. PROMAZINE HYDROCHLORIDE [Suspect]
     Indication: AGITATION
     Dosage: 50 MG/PRN, INTRAMUSCULAR
     Route: 030
  4. CLOZAPINE [Suspect]
     Indication: MANIA
     Dosage: 200 MG, DAILY, UNKNOWN

REACTIONS (3)
  - DYSPHAGIA [None]
  - NEUROLEPTIC MALIGNANT SYNDROME [None]
  - MUTISM [None]
